FAERS Safety Report 17958780 (Version 11)
Quarter: 2022Q3

REPORT INFORMATION
  Report Type: Spontaneous
  Country: US (occurrence: US)
  Receive Date: 20200629
  Receipt Date: 20220901
  Transmission Date: 20221026
  Serious: Yes (Hospitalization)
  Sender: FDA-Public Use
  Company Number: US-PFIZER INC-2019443786

PATIENT
  Age: 71 Year
  Sex: Male
  Weight: 54.43 kg

DRUGS (25)
  1. VFEND [Suspect]
     Active Substance: VORICONAZOLE
     Indication: Pneumonia
     Dosage: 300 MG, 2X/DAY
     Route: 048
  2. VFEND [Suspect]
     Active Substance: VORICONAZOLE
     Indication: Fungal infection
     Dosage: 300 MG, 2X/DAY (TAKE 1.5 TABLETS TWICE DAILY BY MOUTH TWICE DAILY)
     Route: 048
  3. VFEND [Suspect]
     Active Substance: VORICONAZOLE
     Indication: Leukaemia
     Dosage: 300 MG, 2X/DAY (200 MG; 1 AND 1/2 TABLET BY MOUTH TWICE DAILY)
     Route: 048
     Dates: start: 20191010
  4. VFEND [Suspect]
     Active Substance: VORICONAZOLE
     Indication: Lung disorder
     Dosage: 100 MG, 2X/DAY (50 MG TABLET, TWO TABLETS TWICE DAILY)
     Route: 048
  5. VFEND [Suspect]
     Active Substance: VORICONAZOLE
     Indication: Chronic obstructive pulmonary disease
     Dosage: 2 DF, 2X/DAY (STRENGTH: 200 MG)
     Route: 048
  6. VFEND [Suspect]
     Active Substance: VORICONAZOLE
     Indication: Pneumonia fungal
     Dosage: 400 MG, 2X/DAY
     Route: 048
  7. VFEND [Suspect]
     Active Substance: VORICONAZOLE
     Dosage: 400 MG, 2X/DAY (2 200MG TABLETS IN THE MORNING AND AT NIGHT)
  8. VFEND [Suspect]
     Active Substance: VORICONAZOLE
     Dosage: 50 MG, 2X/DAY
  9. VFEND [Suspect]
     Active Substance: VORICONAZOLE
     Dosage: 200 MG, 2X/DAY
     Route: 048
     Dates: start: 2019, end: 202010
  10. VFEND [Suspect]
     Active Substance: VORICONAZOLE
     Dosage: 200 MG, 2X/DAY
     Route: 048
     Dates: start: 2019
  11. VFEND [Suspect]
     Active Substance: VORICONAZOLE
     Dosage: 300 MG, 2X/DAY
     Dates: start: 20201106
  12. VFEND [Suspect]
     Active Substance: VORICONAZOLE
     Dosage: 300 MG, DAILY (6 50MG TO MAKE THE 300MG TOTAL DAILY/200MG TABLET + SPLITTING 1 TO MAKE 300)
  13. VFEND [Suspect]
     Active Substance: VORICONAZOLE
     Dosage: 300 MG, 2X/DAY (300MG, ONCE IN THE MORNING AND ONCE AT NIGHT BY MOUTH )
     Route: 048
  14. VFEND [Suspect]
     Active Substance: VORICONAZOLE
     Dosage: 300 MG, 2X/DAY (50 MG TABLETS, 200 MG TABLET TWICE A DAY W/ TWO 50 MG TABLETS FOR TOTAL OF 300 MG)
     Route: 048
  15. VFEND [Suspect]
     Active Substance: VORICONAZOLE
     Dosage: 300 MG, 2X/DAY (50MG AND 200MG, TAKE 300MG TWICE DAILY)
  16. ALLOPURINOL [Concomitant]
     Active Substance: ALLOPURINOL
     Dosage: 300 MG, 1X/DAY
  17. ASPIRIN [Concomitant]
     Active Substance: ASPIRIN
     Indication: Aortic valve disease
     Dosage: 81 MG, DAILY [81MG, 1 TABLET BY MOUTH DAILY]
     Route: 048
  18. ASPIRIN [Concomitant]
     Active Substance: ASPIRIN
     Indication: Asthenia
  19. IRON [Concomitant]
     Active Substance: IRON
     Dosage: 65 MG, 1X/DAY
     Route: 048
  20. INFLECTRA [Concomitant]
     Active Substance: INFLIXIMAB-DYYB
     Dosage: 50 MG, 1X/DAY (50MG TABLET BY MOUTH ONCE A DAY)
     Route: 048
     Dates: start: 201901
  21. POTASSIUM [Concomitant]
     Active Substance: POTASSIUM
     Indication: Hypokalaemia
     Dosage: 99 MG, DAILY [99MG, 1 TABLET BY MOUTH ONCE DAILY]
     Route: 048
  22. VENCLEXTA [Concomitant]
     Active Substance: VENETOCLAX
     Indication: Chronic lymphocytic leukaemia
     Dosage: 10 MG, 1X/DAY
     Route: 048
  23. VENCLEXTA [Concomitant]
     Active Substance: VENETOCLAX
     Indication: Leukaemia
     Dosage: 50 MG, 1X/DAY, [50 MG TAKE ONCE DAILY BY MOUTH]
     Route: 048
  24. VALACYCLOVIR [Concomitant]
     Active Substance: VALACYCLOVIR HYDROCHLORIDE
     Dosage: 500 MG, DAILY(500MG ONCE AT NIGHT)
     Route: 048
  25. ROSUVASTATIN [Concomitant]
     Active Substance: ROSUVASTATIN
     Dosage: 20 MG

REACTIONS (9)
  - Pyrexia [Unknown]
  - Product dose omission issue [Unknown]
  - Asthenia [Unknown]
  - Pneumonia [Unknown]
  - Dyspnoea [Unknown]
  - Malaise [Unknown]
  - Nausea [Unknown]
  - Product dispensing error [Unknown]
  - Intentional product misuse [Unknown]

NARRATIVE: CASE EVENT DATE: 20191116
